FAERS Safety Report 21295642 (Version 1)
Quarter: 2022Q3

REPORT INFORMATION
  Report Type: Spontaneous
  Country: IT (occurrence: IT)
  Receive Date: 20220906
  Receipt Date: 20220906
  Transmission Date: 20221026
  Serious: Yes (Other)
  Sender: FDA-Public Use
  Company Number: IT-NOVARTISPH-NVSC2022IT198957

PATIENT
  Age: 72 Year

DRUGS (6)
  1. CARBOPLATIN [Suspect]
     Active Substance: CARBOPLATIN
     Indication: Small cell lung cancer
     Dosage: 400 MG, TIW (4 MG/AUC)
     Route: 065
     Dates: start: 20220608
  2. ETOPOSIDE [Suspect]
     Active Substance: ETOPOSIDE
     Indication: Small cell lung cancer
     Dosage: 174 MG, TIW (100 MG/MQ)
     Route: 065
     Dates: start: 20220608
  3. ATEZOLIZUMAB [Suspect]
     Active Substance: ATEZOLIZUMAB
     Indication: Small cell lung cancer
     Dosage: 1200 MG, TIW
     Route: 065
     Dates: start: 20220608
  4. PREDNISONE [Concomitant]
     Active Substance: PREDNISONE
     Indication: Product used for unknown indication
     Dosage: UNK
     Route: 065
  5. DEXAMETHASONE [Concomitant]
     Active Substance: DEXAMETHASONE
     Indication: Product used for unknown indication
     Dosage: 4 MG, BID
     Route: 065
  6. LANSOPRAZOLE [Concomitant]
     Active Substance: LANSOPRAZOLE
     Indication: Product used for unknown indication
     Dosage: 30 MG
     Route: 065

REACTIONS (16)
  - Neutrophilia [Unknown]
  - Polymerase chain reaction positive [Unknown]
  - Disease progression [Unknown]
  - Hyperbilirubinaemia [Not Recovered/Not Resolved]
  - Thrombocytopenia [Unknown]
  - Transaminases increased [Unknown]
  - Paraesthesia [Recovered/Resolved]
  - Cough [Not Recovered/Not Resolved]
  - Gait disturbance [Unknown]
  - Platelet disorder [Unknown]
  - Dyspnoea [Unknown]
  - Confusional state [Not Recovered/Not Resolved]
  - Insomnia [Not Recovered/Not Resolved]
  - Anxiety [Not Recovered/Not Resolved]
  - Hypertransaminasaemia [Not Recovered/Not Resolved]
  - Infection [Unknown]

NARRATIVE: CASE EVENT DATE: 20220610
